FAERS Safety Report 19608902 (Version 1)
Quarter: 2021Q3

REPORT INFORMATION
  Report Type: Spontaneous
  Country: FR (occurrence: FR)
  Receive Date: 20210726
  Receipt Date: 20210726
  Transmission Date: 20211014
  Serious: Yes (Other)
  Sender: FDA-Public Use
  Company Number: FR-LUPIN PHARMACEUTICALS INC.-2021-12742

PATIENT
  Age: 58 Year
  Sex: Female

DRUGS (9)
  1. AMOXICILLIN. [Suspect]
     Active Substance: AMOXICILLIN
     Indication: PRODUCT USED FOR UNKNOWN INDICATION
     Dosage: UNK 20MG/ML DURING SKIN TEST
     Route: 065
  2. PENICILLIN?G [Suspect]
     Active Substance: PENICILLIN G
     Indication: PRODUCT USED FOR UNKNOWN INDICATION
     Dosage: UNK 10000 UI/ML DURING SKIN TEST
     Route: 065
  3. CEFTRIAXONE. [Suspect]
     Active Substance: CEFTRIAXONE
     Indication: PRODUCT USED FOR UNKNOWN INDICATION
     Dosage: UNK 2 MG/ML DURING SKIN TEST
     Route: 065
  4. CEFOTAXIME [Suspect]
     Active Substance: CEFOTAXIME SODIUM
     Indication: PRODUCT USED FOR UNKNOWN INDICATION
     Dosage: UNK
     Route: 065
  5. AMPICILLIN [Suspect]
     Active Substance: AMPICILLIN
     Indication: PRODUCT USED FOR UNKNOWN INDICATION
     Dosage: UNK 20MG/ML DURING SKIN TEST
     Route: 065
  6. CEFUROXIME. [Suspect]
     Active Substance: CEFUROXIME
     Indication: PRODUCT USED FOR UNKNOWN INDICATION
     Dosage: UNK 2 MG/ML DURING SKIN TEST
     Route: 065
  7. PENICILLOYL POLYLYSINE [Suspect]
     Active Substance: PENICILLOYL-POLYLYSINE
     Indication: PRODUCT USED FOR UNKNOWN INDICATION
     Dosage: UNK 20MG/ML DURING SKIN TEST
     Route: 065
  8. CEFRADINE [Suspect]
     Active Substance: CEPHRADINE
     Indication: PRODUCT USED FOR UNKNOWN INDICATION
     Dosage: UNK2 MG/ML DURING SKIN TEST`
     Route: 065
  9. CEFALOTINE [Suspect]
     Active Substance: CEPHALOTHIN
     Indication: PRODUCT USED FOR UNKNOWN INDICATION
     Dosage: UNK?2 MG/ML DURING SKIN TEST
     Route: 065

REACTIONS (4)
  - Anaphylactic shock [Unknown]
  - Angioedema [Unknown]
  - Hypotension [Unknown]
  - Bronchospasm [Unknown]
